FAERS Safety Report 7983624-4 (Version None)
Quarter: 2011Q4

REPORT INFORMATION
  Report Type: 
  Country: None (occurrence: None)
  Receive Date: 20111215
  Receipt Date: 20111212
  Transmission Date: 20120403
  Serious: Yes (Hospitalization)
  Sender: FDA-Public Use
  Company Number: US-GILEAD-2011-0048090

PATIENT
  Age: 90 Year
  Sex: Male

DRUGS (3)
  1. REVATIO [Concomitant]
  2. COUMADIN [Concomitant]
  3. LETAIRIS [Suspect]
     Indication: PRODUCT USED FOR UNKNOWN INDICATION
     Dosage: 5 MG, UNK
     Route: 048
     Dates: start: 20110208

REACTIONS (2)
  - FALL [None]
  - HAEMATOMA [None]
